FAERS Safety Report 25864028 (Version 2)
Quarter: 2025Q4

REPORT INFORMATION
  Report Type: Other
  Country: US (occurrence: US)
  Receive Date: 20250930
  Receipt Date: 20251031
  Transmission Date: 20260118
  Serious: No
  Sender: TRAVERE THERAPEUTICS
  Company Number: US-TRAVERE-2025TVT01523

PATIENT
  Sex: Female

DRUGS (1)
  1. FILSPARI [Suspect]
     Active Substance: SPARSENTAN
     Indication: IgA nephropathy
     Route: 048
     Dates: end: 20250830

REACTIONS (5)
  - Fatigue [None]
  - Pyrexia [Recovered/Resolved]
  - Feeling abnormal [Unknown]
  - Nausea [None]
  - Renal impairment [Unknown]
